FAERS Safety Report 13444047 (Version 5)
Quarter: 2018Q4

REPORT INFORMATION
  Report Type: Spontaneous
  Country: US (occurrence: US)
  Receive Date: 20170414
  Receipt Date: 20181126
  Transmission Date: 20190204
  Serious: Yes (Hospitalization)
  Sender: FDA-Public Use
  Company Number: US-PFIZER INC-2017164151

PATIENT
  Age: 75 Year
  Sex: Female

DRUGS (8)
  1. TRASTUZUMAB. [Concomitant]
     Active Substance: TRASTUZUMAB
     Indication: VULVAR ADENOCARCINOMA
     Dosage: 4 MG/KG, WEEKLY (INITIALLY 4MG/KG WEEKLY; TOTAL 13 DOSES; MAINTAINED AT 2 MG/KG WEEKLY)
     Route: 065
  2. FLUOROURACIL. [Suspect]
     Active Substance: FLUOROURACIL
     Indication: VULVAR ADENOCARCINOMA
     Dosage: 600 MG/M2, CYCLIC
  3. CISPLATIN. [Suspect]
     Active Substance: CISPLATIN
     Indication: VULVAR ADENOCARCINOMA
     Dosage: 40 MG/M2 WEEKLY, FOR 4 WEEKS
  4. METHOTREXATE. [Suspect]
     Active Substance: METHOTREXATE
     Indication: VULVAR ADENOCARCINOMA
     Dosage: 40 MG/M2, CYCLIC
  5. TRASTUZUMAB. [Concomitant]
     Active Substance: TRASTUZUMAB
     Dosage: 2 MG/KG, WEEKLY (MAINTAINED AT 2 MG/KG WEEKLY)
     Route: 065
  6. CARBOPLATIN. [Concomitant]
     Active Substance: CARBOPLATIN
     Indication: VULVAR ADENOCARCINOMA
     Dosage: UNK, CYCLIC (6 AREA UNDER THE CURVE)
     Route: 065
  7. CYCLOPHOSPHAMIDE. [Suspect]
     Active Substance: CYCLOPHOSPHAMIDE
     Indication: VULVAR ADENOCARCINOMA
     Dosage: 600 MG/M2, CYCLIC
     Route: 065
  8. DOCETAXEL. [Concomitant]
     Active Substance: DOCETAXEL
     Indication: VULVAR ADENOCARCINOMA
     Dosage: 75 MG/M2, CYCLIC
     Route: 065

REACTIONS (3)
  - Asthenia [Unknown]
  - Diarrhoea [Recovered/Resolved]
  - Fatigue [Recovered/Resolved]
